FAERS Safety Report 6451114-6 (Version None)
Quarter: 2009Q4

REPORT INFORMATION
  Report Type: 
  Country: None (occurrence: None)
  Receive Date: 20091123
  Receipt Date: 20091111
  Transmission Date: 20100525
  Serious: Yes (Death)
  Sender: FDA-Public Use
  Company Number: JP-PFIZER INC-2009300860

PATIENT
  Age: 81 Year
  Sex: Female
  Weight: 53 kg

DRUGS (6)
  1. CAMPTOSAR [Suspect]
     Indication: COLORECTAL CANCER
     Dosage: 98.6 MG/M2, 140 MG
     Route: 041
     Dates: start: 20090825, end: 20090908
  2. CAMPTOSAR [Suspect]
     Dosage: 56.3 MG/M2, 80 MG
     Route: 041
     Dates: start: 20090922, end: 20091020
  3. CALCIUM LEVOFOLINATE [Concomitant]
     Indication: COLORECTAL CANCER
     Dosage: 211.3 MG/M2, 300 MG
     Route: 041
     Dates: start: 20090825, end: 20091020
  4. FLUOROURACIL [Concomitant]
     Indication: COLORECTAL CANCER
     Dosage: 352.1 MG/M2, 500 MG
     Route: 040
     Dates: start: 20090825, end: 20091020
  5. FLUOROURACIL [Concomitant]
     Dosage: 2112.7 MG/M2/D1-2, 3000 MG/BODY D1-2
     Route: 041
     Dates: start: 20090825, end: 20091020
  6. BEVACIZUMAB [Concomitant]
     Indication: COLORECTAL CANCER
     Dosage: 200 MG
     Route: 041
     Dates: start: 20090825, end: 20091006

REACTIONS (5)
  - HAEMOGLOBIN DECREASED [None]
  - LEUKOPENIA [None]
  - NEUTROPENIA [None]
  - PNEUMONIA [None]
  - THROMBOCYTOPENIA [None]
